FAERS Safety Report 9348386 (Version 2)
Quarter: 2013Q2

REPORT INFORMATION
  Report Type: Spontaneous
  Country: FR (occurrence: FR)
  Receive Date: 20130614
  Receipt Date: 20130617
  Transmission Date: 20140414
  Serious: Yes (Life-Threatening)
  Sender: FDA-Public Use
  Company Number: FR-BRISTOL-MYERS SQUIBB COMPANY-18992321

PATIENT
  Age: 64 Year
  Sex: Male

DRUGS (5)
  1. COUMADINE [Suspect]
     Dosage: LAST DOSE: 12MAR2013. HAS TAKEN WARFARIN ALSO
     Route: 048
  2. PLAVIX [Suspect]
     Dosage: LAST DOSE: 13-MAR-2013. HAS TAKEN CLOPIDOGREL BISULFATE 75 MG AT NOON
     Route: 046
     Dates: start: 201210
  3. ATORVASTATIN [Concomitant]
     Dosage: IN THE EVENING
  4. LOSARTAN [Concomitant]
     Dosage: IN THE MORNING
  5. CARVEDILOL [Concomitant]
     Dosage: 1 IN THE MORNING AND 1 IN THE EVENING

REACTIONS (2)
  - Cerebral haematoma [Recovering/Resolving]
  - Deep vein thrombosis [Unknown]
